FAERS Safety Report 8590079 (Version 2)
Quarter: 2012Q4

REPORT INFORMATION
  Report Type: 
  Country: JP (occurrence: JP)
  Receive Date: 20120601
  Receipt Date: 20121106
  Transmission Date: 20130627
  Serious: Yes (Other)
  Sender: FDA-Public Use
  Company Number: PHHY2012JP045273

PATIENT
  Age: 71 Year
  Sex: Female

DRUGS (4)
  1. NEORAL [Suspect]
     Indication: RHEUMATOID ARTHRITIS
     Dosage: 100 mg, UNK
     Route: 048
     Dates: start: 2003, end: 20070119
  2. TACROLIMUS [Suspect]
     Indication: RHEUMATOID ARTHRITIS
  3. RHEUMATREX [Suspect]
     Indication: RHEUMATOID ARTHRITIS
     Dosage: 4 mg, UNK
     Route: 048
     Dates: start: 2003
  4. PREDNISOLONE [Concomitant]
     Indication: RHEUMATOID ARTHRITIS
     Dosage: 5 mg, UNK
     Route: 048

REACTIONS (5)
  - Bowenoid papulosis [Unknown]
  - Rash papular [Unknown]
  - Skin plaque [Unknown]
  - Skin papilloma [Recovered/Resolved]
  - Rash [Unknown]
